FAERS Safety Report 6032716-8 (Version None)
Quarter: 2009Q1

REPORT INFORMATION
  Report Type: 
  Country: None (occurrence: None)
  Receive Date: 20090105
  Receipt Date: 20080506
  Transmission Date: 20090719
  Serious: Yes (Other)
  Sender: FDA-Public Use
  Company Number: US-000771

PATIENT
  Age: 50 Year
  Sex: Male
  Weight: 154.5 kg

DRUGS (14)
  1. MULTIHANCE [Suspect]
     Indication: NUCLEAR MAGNETIC RESONANCE IMAGING
     Dosage: INTRAVENOUS (NOT OTHERWISE SPECIFIED), INTRAVENOUS (NOT OTHERWISE SPECIFIED), 30ML
     Route: 042
     Dates: start: 20060104, end: 20060104
  2. MULTIHANCE [Suspect]
     Indication: PANCREATITIS NECROTISING
     Dosage: INTRAVENOUS (NOT OTHERWISE SPECIFIED), INTRAVENOUS (NOT OTHERWISE SPECIFIED), 30ML
     Route: 042
     Dates: start: 20060104, end: 20060104
  3. MULTIHANCE [Suspect]
     Indication: NUCLEAR MAGNETIC RESONANCE IMAGING
     Dosage: INTRAVENOUS (NOT OTHERWISE SPECIFIED), INTRAVENOUS (NOT OTHERWISE SPECIFIED), 30ML
     Route: 042
     Dates: start: 20060113, end: 20060113
  4. MULTIHANCE [Suspect]
     Indication: PANCREATITIS NECROTISING
     Dosage: INTRAVENOUS (NOT OTHERWISE SPECIFIED), INTRAVENOUS (NOT OTHERWISE SPECIFIED), 30ML
     Route: 042
     Dates: start: 20060113, end: 20060113
  5. MULTIHANCE [Suspect]
     Indication: NUCLEAR MAGNETIC RESONANCE IMAGING
     Dosage: INTRAVENOUS (NOT OTHERWISE SPECIFIED), INTRAVENOUS (NOT OTHERWISE SPECIFIED), 30ML
     Route: 042
     Dates: start: 20060113, end: 20060113
  6. MULTIHANCE [Suspect]
     Indication: PANCREATITIS NECROTISING
     Dosage: INTRAVENOUS (NOT OTHERWISE SPECIFIED), INTRAVENOUS (NOT OTHERWISE SPECIFIED), 30ML
     Route: 042
     Dates: start: 20060113, end: 20060113
  7. OMNISCAN [Suspect]
     Dosage: 30ML
     Dates: start: 20060104, end: 20060104
  8. OMNISCAN [Suspect]
     Dosage: 30ML
     Dates: start: 20060113, end: 20060113
  9. OMNISCAN [Suspect]
     Dosage: 30ML
     Dates: start: 20060113, end: 20060113
  10. GLUCOTROL XL [Concomitant]
  11. TOPROL-XL [Concomitant]
  12. ALDACTONE [Concomitant]
  13. AVANDIA [Concomitant]
  14. LOTREL [Concomitant]

REACTIONS (1)
  - NEPHROGENIC SYSTEMIC FIBROSIS [None]
